FAERS Safety Report 21813601 (Version 2)
Quarter: 2023Q1

REPORT INFORMATION
  Report Type: Spontaneous
  Country: US (occurrence: US)
  Receive Date: 20230103
  Receipt Date: 20230110
  Transmission Date: 20230418
  Serious: Yes (Hospitalization)
  Sender: FDA-Public Use
  Company Number: US-BEIGENE USA INC-BGN-2022-012076

PATIENT

DRUGS (3)
  1. BRUKINSA [Suspect]
     Active Substance: ZANUBRUTINIB
     Indication: Waldenstrom^s macroglobulinaemia
     Dosage: 320 MILLIGRAM, DAILY FOR 6 WEEKS
     Route: 048
  2. BRUKINSA [Suspect]
     Active Substance: ZANUBRUTINIB
     Dosage: HALF DOSE
  3. BRUKINSA [Suspect]
     Active Substance: ZANUBRUTINIB
     Dosage: FULL DOSE

REACTIONS (3)
  - Haematochezia [Unknown]
  - Haemoglobin decreased [Unknown]
  - Platelet count decreased [Unknown]
